FAERS Safety Report 25664164 (Version 1)
Quarter: 2025Q3

REPORT INFORMATION
  Report Type: Spontaneous
  Country: US (occurrence: None)
  Receive Date: 20250808
  Receipt Date: 20250808
  Transmission Date: 20251020
  Serious: Yes (unspecified)
  Sender: FDA-CTU
  Company Number: None

PATIENT
  Age: 24 Year
  Sex: Female
  Weight: 101 kg

DRUGS (2)
  1. CEFTRIAXONE [Suspect]
     Active Substance: CEFTRIAXONE
     Indication: Sepsis
     Route: 040
     Dates: start: 20250808
  2. STERILE WATER [Concomitant]
     Active Substance: WATER

REACTIONS (3)
  - Anaphylactic reaction [None]
  - Angioedema [None]
  - Pyrexia [None]

NARRATIVE: CASE EVENT DATE: 20250808
